FAERS Safety Report 14742469 (Version 3)
Quarter: 2018Q3

REPORT INFORMATION
  Report Type: Spontaneous
  Country: PL (occurrence: PL)
  Receive Date: 20180410
  Receipt Date: 20180810
  Transmission Date: 20181010
  Serious: Yes (Hospitalization)
  Sender: FDA-Public Use
  Company Number: PL-TEVA-696994ACC

PATIENT
  Age: 82 Year
  Sex: Female
  Weight: 62 kg

DRUGS (3)
  1. MYOCET [Suspect]
     Active Substance: DOXORUBICIN
     Route: 042
     Dates: start: 20150914, end: 20150914
  2. VINCRISTINE [Suspect]
     Active Substance: VINCRISTINE
     Route: 042
     Dates: start: 20150914, end: 20150914
  3. RITUXIMAB. [Suspect]
     Active Substance: RITUXIMAB
     Route: 042
     Dates: start: 20150914, end: 20150914

REACTIONS (2)
  - Neutropenia [Recovered/Resolved]
  - Thrombocytopenia [Recovered/Resolved]

NARRATIVE: CASE EVENT DATE: 20150918
